FAERS Safety Report 14002033 (Version 1)
Quarter: 2017Q3

REPORT INFORMATION
  Report Type: Spontaneous
  Country: HU (occurrence: HU)
  Receive Date: 20170922
  Receipt Date: 20170922
  Transmission Date: 20171128
  Serious: Yes (Other)
  Sender: FDA-Public Use
  Company Number: PHHY2017HU136717

PATIENT
  Age: 58 Year
  Sex: Male

DRUGS (1)
  1. DIOVAN HCT [Suspect]
     Active Substance: HYDROCHLOROTHIAZIDE\VALSARTAN
     Indication: HYPERTENSION
     Dosage: 80 MG, QD
     Route: 048

REACTIONS (3)
  - Intraocular pressure increased [Unknown]
  - Open angle glaucoma [Not Recovered/Not Resolved]
  - Erectile dysfunction [Not Recovered/Not Resolved]
